FAERS Safety Report 5348954-3 (Version None)
Quarter: 2007Q2

REPORT INFORMATION
  Report Type: 
  Country: None (occurrence: None)
  Receive Date: 20070607
  Receipt Date: 20070531
  Transmission Date: 20071010
  Serious: Yes (Other)
  Sender: FDA-Public Use
  Company Number: US-JNJFOC-20070501200

PATIENT
  Sex: Female

DRUGS (7)
  1. CONCERTA [Suspect]
     Indication: DRUG USE FOR UNKNOWN INDICATION
     Route: 048
  2. LAMICTAL [Concomitant]
     Indication: BIPOLAR DISORDER
  3. AMBIEN CR [Concomitant]
     Indication: INSOMNIA
  4. CLONAZEPAM [Concomitant]
     Indication: AGITATION
  5. CLONAZEPAM [Concomitant]
     Indication: INSOMNIA
  6. ZYPREXA [Concomitant]
     Indication: INSOMNIA
  7. ZYPREXA [Concomitant]
     Indication: MANIA
     Dosage: 5-10MG

REACTIONS (8)
  - DISTURBANCE IN ATTENTION [None]
  - DIZZINESS [None]
  - FATIGUE [None]
  - HYPERTENSION [None]
  - PALPITATIONS [None]
  - PULMONARY VALVE DISEASE [None]
  - TIC [None]
  - TRICUSPID VALVE INCOMPETENCE [None]
